FAERS Safety Report 15416814 (Version 2)
Quarter: 2019Q1

REPORT INFORMATION
  Report Type: Report from Study
  Country: None (occurrence: US)
  Receive Date: 20180924
  Receipt Date: 20190327
  Transmission Date: 20190417
  Serious: Yes (Other)
  Sender: FDA-Public Use
  Company Number: US-ABBVIE-18K-163-2225966-00

PATIENT
  Age: 57 Year
  Sex: Female

DRUGS (2)
  1. HUMIRA [Suspect]
     Active Substance: ADALIMUMAB
     Indication: HIDRADENITIS
     Route: 058
     Dates: start: 20171117, end: 2018
  2. HUMIRA [Suspect]
     Active Substance: ADALIMUMAB
     Route: 058
     Dates: start: 201804, end: 201808

REACTIONS (22)
  - Retention cyst [Recovering/Resolving]
  - Intentional product misuse [Not Recovered/Not Resolved]
  - Groin abscess [Recovered/Resolved]
  - Psoriasis [Not Recovered/Not Resolved]
  - Trigger finger [Recovering/Resolving]
  - Tendon disorder [Recovering/Resolving]
  - Groin abscess [Recovering/Resolving]
  - Dizziness [Recovering/Resolving]
  - Skin exfoliation [Not Recovered/Not Resolved]
  - Abdominal pain [Not Recovered/Not Resolved]
  - Pyrexia [Not Recovered/Not Resolved]
  - Groin abscess [Recovered/Resolved]
  - Diarrhoea [Not Recovered/Not Resolved]
  - Tendonitis [Not Recovered/Not Resolved]
  - Fall [Unknown]
  - Drug ineffective [Not Recovered/Not Resolved]
  - Injection site pain [Not Recovered/Not Resolved]
  - Genital abscess [Recovered/Resolved]
  - Injection site bruising [Not Recovered/Not Resolved]
  - Dry skin [Not Recovered/Not Resolved]
  - Pruritus [Not Recovered/Not Resolved]
  - Abdominal abscess [Recovering/Resolving]

NARRATIVE: CASE EVENT DATE: 2017
